FAERS Safety Report 7488418-4 (Version None)
Quarter: 2011Q2

REPORT INFORMATION
  Report Type: 
  Country: None (occurrence: None)
  Receive Date: 20110511
  Receipt Date: 20110428
  Transmission Date: 20111010
  Serious: Yes (Disabling, Other)
  Sender: FDA-Public Use
  Company Number: ALA_02239_2011

PATIENT
  Sex: Female
  Weight: 74.3899 kg

DRUGS (14)
  1. PROMETHAZINE [Concomitant]
  2. PROPULSID [Concomitant]
  3. REGLAN [Suspect]
     Indication: DYSPEPSIA
     Dosage: 5 ML ORAL, 5 MG ORAL, 10 MG ORAL, 5 MG ORAL, 10 MG ORAL, 5 MG ORAL
     Route: 048
     Dates: start: 20061207, end: 20090218
  4. REGLAN [Suspect]
     Indication: GASTROOESOPHAGEAL REFLUX DISEASE
     Dosage: 5 ML ORAL, 5 MG ORAL, 10 MG ORAL, 5 MG ORAL, 10 MG ORAL, 5 MG ORAL
     Route: 048
     Dates: start: 20061207, end: 20090218
  5. REGLAN [Suspect]
     Indication: DYSPEPSIA
     Dosage: 5 ML ORAL, 5 MG ORAL, 10 MG ORAL, 5 MG ORAL, 10 MG ORAL, 5 MG ORAL
     Route: 048
     Dates: start: 20041102, end: 20050620
  6. REGLAN [Suspect]
     Indication: GASTROOESOPHAGEAL REFLUX DISEASE
     Dosage: 5 ML ORAL, 5 MG ORAL, 10 MG ORAL, 5 MG ORAL, 10 MG ORAL, 5 MG ORAL
     Route: 048
     Dates: start: 20041102, end: 20050620
  7. REGLAN [Suspect]
     Indication: DYSPEPSIA
     Dosage: 5 ML ORAL, 5 MG ORAL, 10 MG ORAL, 5 MG ORAL, 10 MG ORAL, 5 MG ORAL
     Route: 048
     Dates: start: 20090316, end: 20091030
  8. REGLAN [Suspect]
     Indication: GASTROOESOPHAGEAL REFLUX DISEASE
     Dosage: 5 ML ORAL, 5 MG ORAL, 10 MG ORAL, 5 MG ORAL, 10 MG ORAL, 5 MG ORAL
     Route: 048
     Dates: start: 20090316, end: 20091030
  9. REGLAN [Suspect]
     Indication: DYSPEPSIA
     Dosage: 5 ML ORAL, 5 MG ORAL, 10 MG ORAL, 5 MG ORAL, 10 MG ORAL, 5 MG ORAL
     Route: 048
     Dates: start: 20090219, end: 20090221
  10. REGLAN [Suspect]
     Indication: GASTROOESOPHAGEAL REFLUX DISEASE
     Dosage: 5 ML ORAL, 5 MG ORAL, 10 MG ORAL, 5 MG ORAL, 10 MG ORAL, 5 MG ORAL
     Route: 048
     Dates: start: 20090219, end: 20090221
  11. REGLAN [Suspect]
     Indication: DYSPEPSIA
     Dosage: 5 ML ORAL, 5 MG ORAL, 10 MG ORAL, 5 MG ORAL, 10 MG ORAL, 5 MG ORAL
     Route: 048
     Dates: start: 20061117, end: 20061121
  12. REGLAN [Suspect]
     Indication: GASTROOESOPHAGEAL REFLUX DISEASE
     Dosage: 5 ML ORAL, 5 MG ORAL, 10 MG ORAL, 5 MG ORAL, 10 MG ORAL, 5 MG ORAL
     Route: 048
     Dates: start: 20061117, end: 20061121
  13. REGLAN [Suspect]
     Indication: DYSPEPSIA
     Dosage: 5 ML ORAL, 5 MG ORAL, 10 MG ORAL, 5 MG ORAL, 10 MG ORAL, 5 MG ORAL
     Route: 048
     Dates: start: 20050623, end: 20060922
  14. REGLAN [Suspect]
     Indication: GASTROOESOPHAGEAL REFLUX DISEASE
     Dosage: 5 ML ORAL, 5 MG ORAL, 10 MG ORAL, 5 MG ORAL, 10 MG ORAL, 5 MG ORAL
     Route: 048
     Dates: start: 20050623, end: 20060922

REACTIONS (9)
  - TARDIVE DYSKINESIA [None]
  - DYSTONIA [None]
  - DYSPHAGIA [None]
  - CHOREA [None]
  - TONGUE DISORDER [None]
  - ECONOMIC PROBLEM [None]
  - EMOTIONAL DISORDER [None]
  - EXTRAPYRAMIDAL DISORDER [None]
  - DYSKINESIA [None]
